FAERS Safety Report 5270424-1 (Version None)
Quarter: 2007Q1

REPORT INFORMATION
  Report Type: 
  Country: None (occurrence: None)
  Receive Date: 20070314
  Receipt Date: 20070218
  Transmission Date: 20070707
  Serious: Yes (Hospitalization)
  Sender: FDA-Public Use
  Company Number: 236700

PATIENT
  Age: 88 Year
  Sex: Female
  Weight: 64 kg

DRUGS (5)
  1. AVASTIN [Suspect]
     Indication: COLORECTAL CANCER
     Dosage: 320 MG, Q2W
     Dates: start: 20061022, end: 20061108
  2. NORMITEN (ATENOLOL) [Concomitant]
  3. PRILOSEC [Concomitant]
  4. CARITA (ASPIRIN) (ASPIRIN) [Concomitant]
  5. CARITA (DILTIAZEM HCL) (DILTIAZEM HYDROCHLORIDE) [Concomitant]

REACTIONS (3)
  - ILEITIS [None]
  - INTESTINAL ISCHAEMIA [None]
  - SMALL INTESTINAL OBSTRUCTION [None]
